FAERS Safety Report 18915543 (Version 5)
Quarter: 2021Q3

REPORT INFORMATION
  Report Type: Report from Study
  Country: FR (occurrence: FR)
  Receive Date: 20210219
  Receipt Date: 20210726
  Transmission Date: 20211014
  Serious: Yes (Hospitalization)
  Sender: FDA-Public Use
  Company Number: FR-JNJFOC-20201229432

PATIENT
  Age: 42 Year
  Sex: Female
  Weight: 95 kg

DRUGS (3)
  1. SPRAVATO [Suspect]
     Active Substance: ESKETAMINE
     Indication: DEPRESSION
     Dosage: 56 MG, 8 TOTAL DOSES
     Dates: start: 20201006, end: 20201029
  2. MIANSERINE [MIANSERIN] [Concomitant]
     Active Substance: MIANSERIN HYDROCHLORIDE
     Indication: DEPRESSION
     Route: 048
     Dates: start: 20200929
  3. SPRAVATO [Suspect]
     Active Substance: ESKETAMINE
     Dosage: 84 MG, 12 TOTAL DOSES
     Dates: start: 20201103, end: 20210218

REACTIONS (6)
  - Off label use [Unknown]
  - Drug ineffective [Recovered/Resolved]
  - Dissociative disorder [Recovered/Resolved]
  - Somnolence [Recovered/Resolved]
  - Product use issue [Unknown]
  - Suicidal ideation [Recovered/Resolved]

NARRATIVE: CASE EVENT DATE: 20201006
